FAERS Safety Report 4277130-0 (Version None)
Quarter: 2004Q1

REPORT INFORMATION
  Report Type: 
  Country: None (occurrence: None)
  Receive Date: 20040120
  Receipt Date: 20040108
  Transmission Date: 20041129
  Serious: Yes (Hospitalization, Other)
  Sender: FDA-Public Use
  Company Number: HQWYE676417DEC03

PATIENT
  Age: 32 Year
  Sex: Female

DRUGS (12)
  1. RAPAMUNE [Suspect]
     Indication: PROPHYLAXIS AGAINST TRANSPLANT REJECTION
     Dosage: 3 MG 1X PER 1 DAY ORAL
     Route: 048
     Dates: start: 19990323
  2. RANITIDINE [Concomitant]
  3. CALCIUM CARBONATE (CALCIUM CARBONATE) [Concomitant]
  4. METOPROLOL SUCCINATE [Concomitant]
  5. SIMVASTATIN [Concomitant]
  6. CALCIFEDIOL (CALCIFEDIOL) [Concomitant]
  7. ENALAPRIL MALEATE [Concomitant]
  8. DIHYDRALAZINE (DIHYDRALAZINE) [Concomitant]
  9. FUROSEMIDE (FURSOEMIDE) [Concomitant]
  10. AMOXICILLIN W/CLAVULANATE POTASSIUM (AMOXICILLIN/CLAVULANTE POTASSIUM) [Concomitant]
  11. COTRIM [Concomitant]
  12. ELECTROLYTE SOLUTIONS [Concomitant]

REACTIONS (5)
  - BLOOD CREATINE INCREASED [None]
  - CLOSTRIDIUM COLITIS [None]
  - DEHYDRATION [None]
  - PYREXIA [None]
  - VOMITING [None]
